FAERS Safety Report 13089564 (Version 1)
Quarter: 2017Q1

REPORT INFORMATION
  Report Type: Spontaneous
  Country: US (occurrence: US)
  Receive Date: 20170105
  Receipt Date: 20170105
  Transmission Date: 20170428
  Serious: Yes (Death)
  Sender: FDA-Public Use
  Company Number: US-PFIZER INC-2017002393

PATIENT
  Sex: Female
  Weight: 43 kg

DRUGS (1)
  1. IBRANCE [Suspect]
     Active Substance: PALBOCICLIB
     Indication: BREAST CANCER
     Dosage: 125 MG, CYCLIC (1X/DAY, FOR 3 WEEKS THEN OFF FOR 1 WEEK)
     Route: 048

REACTIONS (1)
  - Neoplasm progression [Fatal]
